FAERS Safety Report 9607056 (Version 3)
Quarter: 2013Q4

REPORT INFORMATION
  Report Type: Spontaneous
  Country: GB (occurrence: GB)
  Receive Date: 20131009
  Receipt Date: 20131218
  Transmission Date: 20140711
  Serious: Yes (Life-Threatening, Hospitalization)
  Sender: FDA-Public Use
  Company Number: GB-ROCHE-1283118

PATIENT
  Age: 80 Year
  Sex: Female

DRUGS (15)
  1. RITUXIMAB [Suspect]
     Indication: PRODUCT USED FOR UNKNOWN INDICATION
     Dosage: ON 27/SEP/2013 MOST RECENT DOSE PRIOR TO EVENT
     Route: 065
     Dates: start: 20130726
  2. ALLOPURINOL [Suspect]
     Indication: PRODUCT USED FOR UNKNOWN INDICATION
     Route: 048
     Dates: start: 20130726, end: 20130918
  3. BORTEZOMIB [Suspect]
     Indication: PRODUCT USED FOR UNKNOWN INDICATION
     Dosage: 04/OCT/2013, LAST DOSE PRIOR TO EVENT
     Route: 065
     Dates: start: 20130816, end: 20130913
  4. CYCLOPHOSPHAMIDE [Suspect]
     Indication: PRODUCT USED FOR UNKNOWN INDICATION
     Dosage: ON 27/SEP/2013 MOST RECENT DOSE PRIOR TO EVENT
     Route: 065
     Dates: start: 20130726, end: 20130906
  5. DOMPERIDONE [Suspect]
     Indication: PRODUCT USED FOR UNKNOWN INDICATION
     Route: 048
     Dates: start: 20130726, end: 20130918
  6. DOXORUBICIN [Suspect]
     Indication: PRODUCT USED FOR UNKNOWN INDICATION
     Dosage: ON 27/SEP/2013 MOST RECENT DOSE PRIOR TO EVENT
     Route: 065
     Dates: start: 20130726, end: 20130906
  7. DOXORUBICIN [Suspect]
     Route: 065
  8. PREDNISOLONE [Suspect]
     Indication: PRODUCT USED FOR UNKNOWN INDICATION
     Route: 065
     Dates: start: 20130726, end: 20130910
  9. VINCRISTINE [Suspect]
     Indication: PRODUCT USED FOR UNKNOWN INDICATION
     Dosage: ON 27/SEP/2013 MOST RECENT DOSE PRIOR TO EVENT
     Route: 065
     Dates: start: 20130726, end: 20130906
  10. AMIODARONE [Suspect]
     Indication: PRODUCT USED FOR UNKNOWN INDICATION
     Route: 048
     Dates: start: 20110303
  11. BISOPROLOL [Suspect]
     Indication: PRODUCT USED FOR UNKNOWN INDICATION
     Route: 065
     Dates: start: 20100428
  12. CYCLIZINE [Suspect]
     Indication: PRODUCT USED FOR UNKNOWN INDICATION
     Route: 048
     Dates: start: 20130814, end: 20130918
  13. FRAGMIN [Suspect]
     Indication: PRODUCT USED FOR UNKNOWN INDICATION
     Route: 058
     Dates: start: 201307, end: 20130918
  14. LEVOTHYROXINE [Suspect]
     Indication: PRODUCT USED FOR UNKNOWN INDICATION
     Route: 048
     Dates: start: 20120525
  15. FUROSEMIDE [Concomitant]
     Route: 048
     Dates: start: 20100428, end: 20130918

REACTIONS (9)
  - Neutropenia [Not Recovered/Not Resolved]
  - Sepsis [Not Recovered/Not Resolved]
  - Dehydration [Not Recovered/Not Resolved]
  - Hypotension [Not Recovered/Not Resolved]
  - Diarrhoea [Unknown]
  - Syncope [Unknown]
  - Nausea [Unknown]
  - Oropharyngeal pain [Unknown]
  - Vomiting [Unknown]
